FAERS Safety Report 7538028-5 (Version None)
Quarter: 2011Q2

REPORT INFORMATION
  Report Type: 
  Country: None (occurrence: None)
  Receive Date: 20110609
  Receipt Date: 20110606
  Transmission Date: 20111010
  Serious: Yes (Disabling, Other)
  Sender: FDA-Public Use
  Company Number: FR-PFIZER INC-2011121738

PATIENT
  Age: 36 Year
  Sex: Male

DRUGS (3)
  1. PRAVASTATIN [Suspect]
     Indication: HYPERTRIGLYCERIDAEMIA
     Dosage: 20 MG, 1X/DAY
     Route: 048
     Dates: start: 20011022, end: 20020101
  2. ATORVASTATIN [Suspect]
     Dosage: 10 MG, UNK
     Route: 048
     Dates: start: 20020101
  3. ATORVASTATIN [Suspect]
     Dosage: 40 MG, UNK
     Dates: start: 20030101, end: 20110325

REACTIONS (2)
  - TENDONITIS [None]
  - TENDON PAIN [None]
